FAERS Safety Report 6933818-1 (Version None)
Quarter: 2010Q3

REPORT INFORMATION
  Report Type: 
  Country: None (occurrence: None)
  Receive Date: 20100820
  Receipt Date: 20100810
  Transmission Date: 20110219
  Serious: Yes (Hospitalization, Other)
  Sender: FDA-Public Use
  Company Number: US-PFIZER INC-2010059729

PATIENT
  Sex: Male

DRUGS (6)
  1. CHANTIX [Suspect]
     Indication: SMOKING CESSATION THERAPY
     Dosage: CHANTIX STARTER PAK AND 1MG CONTINUING PAK
     Dates: start: 20070601, end: 20090507
  2. HYDROCODONE [Concomitant]
     Indication: PAIN MANAGEMENT
     Dosage: UNK
     Dates: start: 20040101
  3. CLONAZEPAM [Concomitant]
     Indication: ANXIETY
     Dosage: UNK
     Dates: start: 20080101
  4. LYRICA [Concomitant]
     Indication: FIBROMYALGIA
     Dosage: UNK
     Dates: start: 20080101, end: 20100101
  5. CYMBALTA [Concomitant]
     Indication: DEPRESSION
     Dosage: UNK
     Dates: start: 20070101, end: 20100101
  6. OXYCODONE [Concomitant]
     Indication: PAIN MANAGEMENT
     Dosage: UNK
     Dates: start: 20050101, end: 20100101

REACTIONS (7)
  - ANXIETY [None]
  - BURNS SECOND DEGREE [None]
  - CONVULSION [None]
  - DEPRESSION [None]
  - FALL [None]
  - LOSS OF CONSCIOUSNESS [None]
  - SCAR [None]
